FAERS Safety Report 9001034 (Version 1)
Quarter: 2013Q1

REPORT INFORMATION
  Report Type: Spontaneous
  Country: US (occurrence: None)
  Receive Date: 20130103
  Receipt Date: 20130103
  Transmission Date: 20140127
  Serious: Yes (Other)
  Sender: FDA-Public Use
  Company Number: None

PATIENT
  Age: 36 Year
  Sex: Female

DRUGS (1)
  1. LAMICTAL 100 [Suspect]
     Indication: GRAND MAL CONVULSION
     Dosage: LAST MONTH
     Route: 048

REACTIONS (2)
  - Convulsion [None]
  - Product substitution issue [None]
